FAERS Safety Report 23219074 (Version 3)
Quarter: 2024Q1

REPORT INFORMATION
  Report Type: Spontaneous
  Country: BR (occurrence: BR)
  Receive Date: 20231122
  Receipt Date: 20240111
  Transmission Date: 20240410
  Serious: Yes (Other)
  Sender: FDA-Public Use
  Company Number: BR-PFIZER INC-202300381351

PATIENT
  Sex: Female

DRUGS (1)
  1. DEPO-PROVERA [Suspect]
     Active Substance: MEDROXYPROGESTERONE ACETATE

REACTIONS (4)
  - Deafness [Unknown]
  - Drug dose omission by device [Unknown]
  - Liquid product physical issue [Unknown]
  - Product colour issue [Unknown]
